FAERS Safety Report 13937274 (Version 1)
Quarter: 2017Q3

REPORT INFORMATION
  Report Type: Spontaneous
  Country: GB (occurrence: GB)
  Receive Date: 20170905
  Receipt Date: 20170905
  Transmission Date: 20171127
  Serious: Yes (Hospitalization)
  Sender: FDA-Public Use
  Company Number: GB-CHIESI USA INC.-GB-2017CHI000185

PATIENT
  Sex: Female

DRUGS (3)
  1. CAYSTON [Suspect]
     Active Substance: AZTREONAM
     Indication: PRODUCT USE IN UNAPPROVED INDICATION
     Dosage: 75 MG, TID
     Route: 055
  2. PULMOZYME [Suspect]
     Active Substance: DORNASE ALFA
     Indication: PRODUCT USE IN UNAPPROVED INDICATION
     Dosage: 2.5 MG, BID
     Route: 055
  3. TOBRAMYCIN. [Suspect]
     Active Substance: TOBRAMYCIN
     Indication: CYSTIC FIBROSIS
     Dosage: 300 MG, BID
     Route: 055

REACTIONS (1)
  - Ill-defined disorder [Unknown]
